FAERS Safety Report 9526869 (Version 8)
Quarter: 2014Q2

REPORT INFORMATION
  Report Type: Report from Study
  Country: AU (occurrence: AU)
  Receive Date: 20130916
  Receipt Date: 20140515
  Transmission Date: 20141212
  Serious: Yes (Hospitalization)
  Sender: FDA-Public Use
  Company Number: AU-ABBVIE-13P-008-1121095-00

PATIENT
  Age: 38 Year
  Sex: Female

DRUGS (12)
  1. ENDEP [Concomitant]
     Indication: MIGRAINE
     Route: 048
     Dates: start: 2009
  2. TRAMADOL HYDROCHLORIDE [Concomitant]
     Indication: MIGRAINE
     Route: 048
     Dates: start: 20121126
  3. PHISOHEX [Concomitant]
     Indication: HIDRADENITIS
     Route: 061
     Dates: start: 20121126
  4. PREDATOR (NUTRITIONAL SUPPLEMENT) [Concomitant]
     Indication: ROUTINE HEALTH MAINTENANCE
     Route: 048
     Dates: start: 20130318
  5. CREATINE MONOHYDRATE [Concomitant]
     Indication: ROUTINE HEALTH MAINTENANCE
     Route: 048
     Dates: start: 20130519
  6. BETA-ALANINE [Concomitant]
     Indication: ROUTINE HEALTH MAINTENANCE
     Route: 048
     Dates: start: 20130519
  7. PARACETAMOL [Concomitant]
     Indication: HEADACHE
     Route: 048
     Dates: start: 1998
  8. IBUPROFEN [Concomitant]
     Indication: HEADACHE
     Route: 048
     Dates: start: 1998
  9. HUMIRA [Suspect]
     Indication: HIDRADENITIS
     Dosage: BASELINE
     Route: 058
     Dates: start: 20121207, end: 20121207
  10. HUMIRA [Suspect]
     Dosage: WEEK 2
     Route: 058
     Dates: start: 20121221, end: 20121221
  11. HUMIRA [Suspect]
     Route: 058
     Dates: start: 20130103, end: 20130712
  12. HUMIRA [Suspect]
     Route: 058
     Dates: start: 20130816

REACTIONS (1)
  - Lymphadenitis [Not Recovered/Not Resolved]
